FAERS Safety Report 26051063 (Version 1)
Quarter: 2025Q4

REPORT INFORMATION
  Report Type: Report from Study
  Country: GB (occurrence: GB)
  Receive Date: 20251117
  Receipt Date: 20251117
  Transmission Date: 20260117
  Serious: Yes (Other)
  Sender: ASTELLAS
  Company Number: GB-ASTELLAS-2025-AER-062599

PATIENT
  Age: 63 Year
  Sex: Male

DRUGS (1)
  1. ENZALUTAMIDE [Suspect]
     Active Substance: ENZALUTAMIDE
     Indication: Prostate cancer
     Route: 048
     Dates: start: 20250903

REACTIONS (3)
  - Erectile dysfunction [Not Recovered/Not Resolved]
  - Skin culture positive [Not Recovered/Not Resolved]
  - Genital infection bacterial [Not Recovered/Not Resolved]

NARRATIVE: CASE EVENT DATE: 20251022
